FAERS Safety Report 5298222-3 (Version None)
Quarter: 2007Q1

REPORT INFORMATION
  Report Type: 
  Country: None (occurrence: None)
  Receive Date: 20070205
  Receipt Date: 20060531
  Transmission Date: 20070707
  Serious: Yes (Other)
  Sender: FDA-Public Use
  Company Number: US200606000050

PATIENT
  Age: 68 Year
  Sex: Female

DRUGS (3)
  1. EVISTA [Suspect]
     Indication: OSTEOPOROSIS
     Dates: start: 20010101
  2. FORTEO [Suspect]
     Indication: OSTEOPOROSIS
     Dates: start: 20060501
  3. FORTEO [Concomitant]

REACTIONS (10)
  - BACK DISORDER [None]
  - BACK PAIN [None]
  - BONE DISORDER [None]
  - DIZZINESS [None]
  - FALL [None]
  - HEADACHE [None]
  - MALAISE [None]
  - PAIN IN EXTREMITY [None]
  - SYNCOPE [None]
  - VOMITING [None]
